FAERS Safety Report 8696492 (Version 3)
Quarter: 2013Q4

REPORT INFORMATION
  Report Type: Spontaneous
  Country: US (occurrence: US)
  Receive Date: 20120801
  Receipt Date: 20131105
  Transmission Date: 20140711
  Serious: Yes (Life-Threatening, Hospitalization, Other)
  Sender: FDA-Public Use
  Company Number: US-MSD-1207USA012562

PATIENT
  Age: 20 Year
  Sex: Female

DRUGS (3)
  1. SAPHRIS [Suspect]
     Indication: SCHIZOPHRENIA
     Dosage: 5 MG, BID
     Dates: start: 201207, end: 201207
  2. LITHIUM [Concomitant]
  3. KLONOPIN [Concomitant]

REACTIONS (1)
  - Erythema multiforme [Not Recovered/Not Resolved]
